FAERS Safety Report 6216186-2 (Version None)
Quarter: 2009Q2

REPORT INFORMATION
  Report Type: 
  Country: None (occurrence: None)
  Receive Date: 20090605
  Receipt Date: 20090601
  Transmission Date: 20091009
  Serious: Yes (Other)
  Sender: FDA-Public Use
  Company Number: B0576579A

PATIENT
  Age: 49 Year
  Sex: Female
  Weight: 54 kg

DRUGS (1)
  1. NICORETTE [Suspect]
     Indication: SMOKING CESSATION THERAPY
     Route: 048
     Dates: start: 20081231, end: 20090210

REACTIONS (10)
  - APPLICATION SITE ERYTHEMA [None]
  - CAUSTIC INJURY [None]
  - EATING DISORDER [None]
  - LIP SWELLING [None]
  - ORAL PAIN [None]
  - PARAESTHESIA ORAL [None]
  - SIALOADENITIS [None]
  - STRESS [None]
  - SWELLING FACE [None]
  - SWOLLEN TONGUE [None]
